FAERS Safety Report 10069686 (Version 1)
Quarter: 2014Q2

REPORT INFORMATION
  Report Type: Spontaneous
  Country: US (occurrence: None)
  Receive Date: 20140409
  Receipt Date: 20140409
  Transmission Date: 20141212
  Serious: Yes (Other)
  Sender: FDA-Public Use
  Company Number: None

PATIENT
  Age: 42 Year
  Sex: Female
  Weight: 81.65 kg

DRUGS (1)
  1. MIRVASO [Suspect]
     Indication: ROSACEA
     Dosage: PEA SIZED AMOUNT ONCE DAILY APPLIED TO A SURFACE, USUALLY THE SKIN
     Route: 061
     Dates: start: 20140402, end: 20140406

REACTIONS (3)
  - Skin burning sensation [None]
  - Rash macular [None]
  - Erythema [None]
